FAERS Safety Report 25631554 (Version 1)
Quarter: 2025Q3

REPORT INFORMATION
  Report Type: Spontaneous
  Country: US (occurrence: US)
  Receive Date: 20250801
  Receipt Date: 20250801
  Transmission Date: 20251020
  Serious: No
  Sender: GLAXOSMITHKLINE
  Company Number: US-GSK-US2025AMR085487

PATIENT
  Sex: Male

DRUGS (2)
  1. NUCALA [Suspect]
     Active Substance: MEPOLIZUMAB
     Indication: Nasal polyps
     Dosage: 100 MG, Q4W
     Dates: start: 202503
  2. NUCALA [Suspect]
     Active Substance: MEPOLIZUMAB
     Indication: Chronic sinusitis

REACTIONS (6)
  - Fatigue [Unknown]
  - Rash [Unknown]
  - Nasal polyps [Unknown]
  - Chronic sinusitis [Unknown]
  - Condition aggravated [Unknown]
  - Product use in unapproved indication [Unknown]
